FAERS Safety Report 6230148-0 (Version None)
Quarter: 2009Q2

REPORT INFORMATION
  Report Type: 
  Country: None (occurrence: None)
  Receive Date: 20090615
  Receipt Date: 20090604
  Transmission Date: 20091009
  Serious: Yes (Other)
  Sender: FDA-Public Use
  Company Number: PHHY2009BR22023

PATIENT
  Age: 77 Year
  Sex: Male
  Weight: 53 kg

DRUGS (4)
  1. EXELON [Suspect]
     Indication: DEMENTIA
     Dosage: 9MG/5CM2 , 1 PATCH PER DAY
     Route: 062
     Dates: start: 20090301, end: 20090529
  2. EXELON [Suspect]
     Dosage: 18MG/10CM2, 1 PATCH PER DAY
     Route: 062
     Dates: start: 20090530, end: 20090601
  3. EBIXA [Concomitant]
     Indication: MEMORY IMPAIRMENT
     Dosage: 1 TABLET IN THE MORNING AND ANOTHER ONE AT NIGHT
     Route: 048
     Dates: start: 20050101
  4. TAMSULOSIN HYDROCHLORIDE [Concomitant]
     Indication: URINARY INCONTINENCE
     Dosage: ONCE AT NIGHT
     Route: 048
     Dates: start: 20080101

REACTIONS (4)
  - ANOREXIA [None]
  - BALANCE DISORDER [None]
  - EATING DISORDER [None]
  - HAEMATOCHEZIA [None]
